FAERS Safety Report 18472714 (Version 2)
Quarter: 2020Q4

REPORT INFORMATION
  Report Type: Spontaneous
  Country: TH (occurrence: TH)
  Receive Date: 20201106
  Receipt Date: 20201116
  Transmission Date: 20210114
  Serious: Yes (Other)
  Sender: FDA-Public Use
  Company Number: TH-PFIZER INC-2020424085

PATIENT
  Age: 66 Year
  Sex: Male

DRUGS (15)
  1. VANCOMYCIN [Suspect]
     Active Substance: VANCOMYCIN
     Indication: ENDOPHTHALMITIS
     Dosage: UNK, (1 MG/0.1 ML, INTRAVITREAL)
  2. DOXYCYCLINE HYCLATE. [Suspect]
     Active Substance: DOXYCYCLINE HYCLATE
     Indication: ENDOPHTHALMITIS
     Dosage: 200 MG, DAILY
     Route: 048
  3. RIFAMPICIN [Suspect]
     Active Substance: RIFAMPIN
     Indication: ENDOPHTHALMITIS
     Dosage: UNK
  4. AMIKACIN. [Suspect]
     Active Substance: AMIKACIN
     Dosage: 750 MG, 1X/DAY
     Route: 042
  5. CEFTAZIDIME. [Suspect]
     Active Substance: CEFTAZIDIME
     Indication: ENDOPHTHALMITIS
     Dosage: UNK,  (2.25 MG/0.1 ML, INTRAVITREAL)
  6. AMIKACIN. [Suspect]
     Active Substance: AMIKACIN
     Indication: ENDOPHTHALMITIS
     Dosage: UNK, (400 MCG/0.1 ML)
  7. LEVOFLOXACIN. [Suspect]
     Active Substance: LEVOFLOXACIN
     Indication: ENDOPHTHALMITIS
     Dosage: 750 MG, 1X/DAY
     Route: 042
  8. PREDNISOLONE. [Concomitant]
     Active Substance: PREDNISOLONE
     Indication: UVEITIS
     Dosage: 1 MG/KG, 1X/DAY
  9. AZITHROMYCIN ANHYDROUS. [Suspect]
     Active Substance: AZITHROMYCIN ANHYDROUS
     Indication: ENDOPHTHALMITIS
     Dosage: UNK
  10. LEVOFLOXACIN. [Suspect]
     Active Substance: LEVOFLOXACIN
     Dosage: UNK, EVERY HOUR
     Route: 047
  11. VANCOMYCIN [Suspect]
     Active Substance: VANCOMYCIN
     Dosage: 1 G, 1X/DAY
     Route: 042
  12. IMIPENEM [Suspect]
     Active Substance: IMIPENEM
     Indication: ENDOPHTHALMITIS
     Dosage: 4 G, 1X/DAY
     Route: 042
  13. TOBRAMYCIN. [Suspect]
     Active Substance: TOBRAMYCIN
     Indication: ENDOPHTHALMITIS
     Dosage: UNK (EYE OINTMENT, BEFORE BEDTIME)
  14. CLARITHROMYCIN. [Suspect]
     Active Substance: CLARITHROMYCIN
     Indication: ENDOPHTHALMITIS
     Dosage: 1 G, DAILY
  15. CIPROFLOXACIN. [Suspect]
     Active Substance: CIPROFLOXACIN
     Indication: ENDOPHTHALMITIS
     Dosage: 1500 MG, DAILY

REACTIONS (3)
  - Atrophy of globe [Unknown]
  - Off label use [Unknown]
  - Drug ineffective for unapproved indication [Unknown]
